FAERS Safety Report 13196492 (Version 2)
Quarter: 2017Q1

REPORT INFORMATION
  Report Type: Spontaneous
  Country: JP (occurrence: JP)
  Receive Date: 20170208
  Receipt Date: 20170216
  Transmission Date: 20170428
  Serious: Yes (Hospitalization)
  Sender: FDA-Public Use
  Company Number: JP-UNITED THERAPEUTICS-UNT-2017-001359

PATIENT
  Age: 3 Year
  Sex: Male
  Weight: 12.3 kg

DRUGS (5)
  1. UNITUXIN [Suspect]
     Active Substance: DINUTUXIMAB
     Indication: NEUROBLASTOMA
     Dosage: UNK
     Route: 041
     Dates: start: 20160828
  2. ALDESLEUKIN [Suspect]
     Active Substance: ALDESLEUKIN
     Indication: NEUROBLASTOMA
     Dosage: UNK
     Route: 041
     Dates: start: 20160927, end: 20161203
  3. BAKTAR [Concomitant]
     Active Substance: SULFAMETHOXAZOLE\TRIMETHOPRIM
     Indication: INFECTION PROPHYLAXIS
     Dosage: 1.5 G, QD
     Route: 048
     Dates: start: 20160819
  4. ISOTRETINOIN [Suspect]
     Active Substance: ISOTRETINOIN
     Indication: NEUROBLASTOMA
     Dosage: 80 MG, TOTAL DAILY DOSE
     Route: 048
     Dates: start: 20160828, end: 20170120
  5. SARGRAMOSTIM [Suspect]
     Active Substance: SARGRAMOSTIM
     Indication: NEUROBLASTOMA
     Dosage: 135 MICROGRAMS, TOTAL DAILY DOSE
     Route: 023
     Dates: start: 20160828, end: 20170110

REACTIONS (1)
  - Oral herpes [Recovered/Resolved]

NARRATIVE: CASE EVENT DATE: 20170127
